FAERS Safety Report 20375848 (Version 1)
Quarter: 2022Q1

REPORT INFORMATION
  Report Type: Spontaneous
  Country: GB (occurrence: GB)
  Receive Date: 20220125
  Receipt Date: 20220125
  Transmission Date: 20220423
  Serious: Yes (Other)
  Sender: FDA-Public Use
  Company Number: None

PATIENT
  Age: 55 Year
  Sex: Male

DRUGS (4)
  1. LORAZEPAM [Suspect]
     Active Substance: LORAZEPAM
     Indication: Anxiety
     Dosage: 1 MG
     Route: 048
     Dates: start: 20220110, end: 20220110
  2. INSULIN NOS [Concomitant]
     Active Substance: INSULIN NOS
     Indication: Ill-defined disorder
     Dosage: UNK
  3. METFORMIN [Concomitant]
     Active Substance: METFORMIN HYDROCHLORIDE
     Indication: Ill-defined disorder
     Dosage: UNK
  4. TRAMADOL HYDROCHLORIDE [Concomitant]
     Active Substance: TRAMADOL HYDROCHLORIDE
     Indication: Ill-defined disorder
     Dosage: UNK

REACTIONS (6)
  - Bipolar disorder [Unknown]
  - Mania [Unknown]
  - Irritability [Unknown]
  - Insomnia [Recovered/Resolved]
  - Euphoric mood [Unknown]
  - Depression [Unknown]

NARRATIVE: CASE EVENT DATE: 20220110
